FAERS Safety Report 23309240 (Version 7)
Quarter: 2025Q2

REPORT INFORMATION
  Report Type: Spontaneous
  Country: ES (occurrence: ES)
  Receive Date: 20231218
  Receipt Date: 20250630
  Transmission Date: 20250717
  Serious: Yes (Death, Other)
  Sender: MYLAN
  Company Number: ES-ROCHE-3463387

PATIENT
  Age: 57 Year
  Sex: Male

DRUGS (80)
  1. MYCOPHENOLATE MOFETIL [Suspect]
     Active Substance: MYCOPHENOLATE MOFETIL
     Indication: Prophylaxis against transplant rejection
  2. MYCOPHENOLATE MOFETIL [Suspect]
     Active Substance: MYCOPHENOLATE MOFETIL
     Indication: Prophylaxis against graft versus host disease
     Route: 065
  3. MYCOPHENOLATE MOFETIL [Suspect]
     Active Substance: MYCOPHENOLATE MOFETIL
     Route: 065
  4. MYCOPHENOLATE MOFETIL [Suspect]
     Active Substance: MYCOPHENOLATE MOFETIL
  5. FLUDARABINE [Suspect]
     Active Substance: FLUDARABINE PHOSPHATE
     Indication: Prophylaxis against transplant rejection
  6. FLUDARABINE [Suspect]
     Active Substance: FLUDARABINE PHOSPHATE
     Indication: Allogenic stem cell transplantation
     Route: 065
  7. FLUDARABINE [Suspect]
     Active Substance: FLUDARABINE PHOSPHATE
     Route: 065
  8. FLUDARABINE [Suspect]
     Active Substance: FLUDARABINE PHOSPHATE
  9. CISPLATIN [Suspect]
     Active Substance: CISPLATIN
     Indication: Lymphoma transformation
  10. CISPLATIN [Suspect]
     Active Substance: CISPLATIN
     Route: 065
  11. CISPLATIN [Suspect]
     Active Substance: CISPLATIN
     Route: 065
  12. CISPLATIN [Suspect]
     Active Substance: CISPLATIN
  13. TACROLIMUS [Suspect]
     Active Substance: TACROLIMUS
     Indication: Prophylaxis against transplant rejection
  14. TACROLIMUS [Suspect]
     Active Substance: TACROLIMUS
     Indication: Prophylaxis against graft versus host disease
     Route: 065
  15. TACROLIMUS [Suspect]
     Active Substance: TACROLIMUS
     Route: 065
  16. TACROLIMUS [Suspect]
     Active Substance: TACROLIMUS
  17. ETOPOSIDE [Suspect]
     Active Substance: ETOPOSIDE
     Indication: Lymphoma transformation
  18. ETOPOSIDE [Suspect]
     Active Substance: ETOPOSIDE
     Route: 065
  19. ETOPOSIDE [Suspect]
     Active Substance: ETOPOSIDE
     Route: 065
  20. ETOPOSIDE [Suspect]
     Active Substance: ETOPOSIDE
  21. CYTARABINE [Suspect]
     Active Substance: CYTARABINE
     Indication: Lymphoma transformation
  22. CYTARABINE [Suspect]
     Active Substance: CYTARABINE
     Route: 065
  23. CYTARABINE [Suspect]
     Active Substance: CYTARABINE
     Route: 065
  24. CYTARABINE [Suspect]
     Active Substance: CYTARABINE
  25. RITUXIMAB [Suspect]
     Active Substance: RITUXIMAB
     Indication: Lymphoma transformation
  26. RITUXIMAB [Suspect]
     Active Substance: RITUXIMAB
     Route: 065
  27. RITUXIMAB [Suspect]
     Active Substance: RITUXIMAB
     Route: 065
  28. RITUXIMAB [Suspect]
     Active Substance: RITUXIMAB
  29. METHYLPREDNISOLONE [Suspect]
     Active Substance: METHYLPREDNISOLONE
     Indication: Lymphoma transformation
  30. METHYLPREDNISOLONE [Suspect]
     Active Substance: METHYLPREDNISOLONE
     Route: 065
  31. METHYLPREDNISOLONE [Suspect]
     Active Substance: METHYLPREDNISOLONE
     Route: 065
  32. METHYLPREDNISOLONE [Suspect]
     Active Substance: METHYLPREDNISOLONE
  33. VINCRISTINE [Suspect]
     Active Substance: VINCRISTINE
     Indication: Lymphoma transformation
  34. VINCRISTINE [Suspect]
     Active Substance: VINCRISTINE
     Route: 065
  35. VINCRISTINE [Suspect]
     Active Substance: VINCRISTINE
     Route: 065
  36. VINCRISTINE [Suspect]
     Active Substance: VINCRISTINE
  37. ATEZOLIZUMAB [Suspect]
     Active Substance: ATEZOLIZUMAB
     Indication: Lymphoma transformation
  38. ATEZOLIZUMAB [Suspect]
     Active Substance: ATEZOLIZUMAB
     Route: 042
  39. ATEZOLIZUMAB [Suspect]
     Active Substance: ATEZOLIZUMAB
     Route: 042
  40. ATEZOLIZUMAB [Suspect]
     Active Substance: ATEZOLIZUMAB
  41. CYCLOPHOSPHAMIDE [Suspect]
     Active Substance: CYCLOPHOSPHAMIDE
     Indication: Lymphoma transformation
  42. CYCLOPHOSPHAMIDE [Suspect]
     Active Substance: CYCLOPHOSPHAMIDE
     Indication: Prophylaxis against graft versus host disease
     Route: 065
  43. CYCLOPHOSPHAMIDE [Suspect]
     Active Substance: CYCLOPHOSPHAMIDE
     Indication: Prophylaxis against transplant rejection
     Route: 065
  44. CYCLOPHOSPHAMIDE [Suspect]
     Active Substance: CYCLOPHOSPHAMIDE
  45. THIOTEPA [Suspect]
     Active Substance: THIOTEPA
     Indication: Prophylaxis against transplant rejection
  46. THIOTEPA [Suspect]
     Active Substance: THIOTEPA
     Indication: Allogenic stem cell transplantation
     Route: 065
  47. THIOTEPA [Suspect]
     Active Substance: THIOTEPA
     Route: 065
  48. THIOTEPA [Suspect]
     Active Substance: THIOTEPA
  49. PREDNISONE [Suspect]
     Active Substance: PREDNISONE
     Indication: Lymphoma transformation
  50. PREDNISONE [Suspect]
     Active Substance: PREDNISONE
     Route: 065
  51. PREDNISONE [Suspect]
     Active Substance: PREDNISONE
     Route: 065
  52. PREDNISONE [Suspect]
     Active Substance: PREDNISONE
  53. GLOFITAMAB [Suspect]
     Active Substance: GLOFITAMAB
     Indication: Lymphoma transformation
  54. GLOFITAMAB [Suspect]
     Active Substance: GLOFITAMAB
     Route: 042
  55. GLOFITAMAB [Suspect]
     Active Substance: GLOFITAMAB
     Route: 042
  56. GLOFITAMAB [Suspect]
     Active Substance: GLOFITAMAB
  57. BUSULFAN [Suspect]
     Active Substance: BUSULFAN
     Indication: Prophylaxis against transplant rejection
  58. BUSULFAN [Suspect]
     Active Substance: BUSULFAN
     Indication: Allogenic stem cell transplantation
     Route: 065
  59. BUSULFAN [Suspect]
     Active Substance: BUSULFAN
     Route: 065
  60. BUSULFAN [Suspect]
     Active Substance: BUSULFAN
  61. DOXORUBICIN [Suspect]
     Active Substance: DOXORUBICIN
     Indication: Lymphoma transformation
  62. DOXORUBICIN [Suspect]
     Active Substance: DOXORUBICIN
     Route: 065
  63. DOXORUBICIN [Suspect]
     Active Substance: DOXORUBICIN
     Route: 065
  64. DOXORUBICIN [Suspect]
     Active Substance: DOXORUBICIN
  65. SULFAMETHOXAZOLE\TRIMETHOPRIM [Concomitant]
     Active Substance: SULFAMETHOXAZOLE\TRIMETHOPRIM
     Indication: Infection prophylaxis
  66. SULFAMETHOXAZOLE\TRIMETHOPRIM [Concomitant]
     Active Substance: SULFAMETHOXAZOLE\TRIMETHOPRIM
     Route: 065
  67. SULFAMETHOXAZOLE\TRIMETHOPRIM [Concomitant]
     Active Substance: SULFAMETHOXAZOLE\TRIMETHOPRIM
     Route: 065
  68. SULFAMETHOXAZOLE\TRIMETHOPRIM [Concomitant]
     Active Substance: SULFAMETHOXAZOLE\TRIMETHOPRIM
  69. ACYCLOVIR [Concomitant]
     Active Substance: ACYCLOVIR
     Indication: Infection prophylaxis
  70. ACYCLOVIR [Concomitant]
     Active Substance: ACYCLOVIR
     Route: 065
  71. ACYCLOVIR [Concomitant]
     Active Substance: ACYCLOVIR
     Route: 065
  72. ACYCLOVIR [Concomitant]
     Active Substance: ACYCLOVIR
  73. POSACONAZOLE [Concomitant]
     Active Substance: POSACONAZOLE
     Indication: Infection prophylaxis
  74. POSACONAZOLE [Concomitant]
     Active Substance: POSACONAZOLE
     Route: 065
  75. POSACONAZOLE [Concomitant]
     Active Substance: POSACONAZOLE
     Route: 065
  76. POSACONAZOLE [Concomitant]
     Active Substance: POSACONAZOLE
  77. PENTAMIDINE [Concomitant]
     Active Substance: PENTAMIDINE
     Indication: Infection prophylaxis
  78. PENTAMIDINE [Concomitant]
     Active Substance: PENTAMIDINE
     Route: 055
  79. PENTAMIDINE [Concomitant]
     Active Substance: PENTAMIDINE
     Route: 055
  80. PENTAMIDINE [Concomitant]
     Active Substance: PENTAMIDINE

REACTIONS (7)
  - Graft versus host disease [Fatal]
  - Infection [Fatal]
  - Chronic graft versus host disease [Fatal]
  - Off label use [Fatal]
  - Chronic graft versus host disease in intestine [Unknown]
  - Chronic graft versus host disease in lung [Unknown]
  - Product use issue [Unknown]
